FAERS Safety Report 8893796 (Version 1)
Quarter: 2012Q4

REPORT INFORMATION
  Report Type: 
  Country: US (occurrence: US)
  Receive Date: 20121108
  Receipt Date: 20121108
  Transmission Date: 20130627
  Serious: No
  Sender: FDA-Public Use
  Company Number: US-PFIZER INC-2012276233

PATIENT
  Age: 58 Year
  Sex: Male

DRUGS (1)
  1. VFEND [Suspect]
     Dosage: 200 mg, 2x/day
     Dates: start: 20101104

REACTIONS (2)
  - Memory impairment [Unknown]
  - Drug dose omission [Unknown]
